FAERS Safety Report 8567795-7 (Version None)
Quarter: 2012Q3

REPORT INFORMATION
  Report Type: 
  Country: None (occurrence: None)
  Receive Date: 20120803
  Receipt Date: 20120723
  Transmission Date: 20120928
  Serious: Yes (Hospitalization)
  Sender: FDA-Public Use
  Company Number: US-BRISTOL-MYERS SQUIBB COMPANY-16793846

PATIENT
  Age: 77 Year
  Sex: Male
  Weight: 109 kg

DRUGS (12)
  1. COUMADIN [Suspect]
     Indication: CEREBROVASCULAR ACCIDENT
     Dosage: INTER ON 29APR12(1 YEAR).
     Route: 048
     Dates: start: 20101101
  2. ASPIRIN [Suspect]
     Indication: CORONARY ARTERY DISEASE
     Dosage: 27OCT11-29APR12(186 DAYS) 08MAY12-ONG
     Route: 048
     Dates: start: 20111027
  3. CARTIA XT [Concomitant]
     Indication: HYPERTENSION
     Route: 048
  4. VIGRAN [Concomitant]
     Indication: MEDICAL DIET
     Route: 048
     Dates: start: 20110401
  5. ATIVAN [Concomitant]
     Indication: ANXIETY
     Route: 048
     Dates: start: 20110501
  6. FLOMAX [Concomitant]
     Indication: BENIGN PROSTATIC HYPERPLASIA
     Route: 048
     Dates: start: 20080101
  7. NIFEREX [Concomitant]
     Indication: ANAEMIA PROPHYLAXIS
     Route: 048
     Dates: start: 20110301
  8. PLAVIX [Suspect]
     Indication: CEREBROVASCULAR ACCIDENT
     Dosage: UNKN-29APR12 08MAY12-ONG
     Route: 048
  9. OPTIVE [Concomitant]
     Indication: DRY EYE
  10. NOVOLOG [Concomitant]
     Indication: DIABETES MELLITUS
     Route: 030
     Dates: start: 20101101
  11. LANTUS [Concomitant]
     Indication: DIABETES MELLITUS
     Dosage: LANTUS SOLOSTAR
     Route: 030
     Dates: start: 20101101
  12. CLONIDINE [Concomitant]
     Indication: HYPERTENSION
     Route: 048
     Dates: start: 20110401

REACTIONS (7)
  - ACUTE MYOCARDIAL INFARCTION [None]
  - CARDIAC FAILURE CONGESTIVE [None]
  - GASTROINTESTINAL HAEMORRHAGE [None]
  - ANAEMIA [None]
  - RENAL FAILURE CHRONIC [None]
  - GRAFT COMPLICATION [None]
  - RENAL FAILURE [None]
